FAERS Safety Report 8309115-9 (Version None)
Quarter: 2012Q2

REPORT INFORMATION
  Report Type: 
  Country: None (occurrence: None)
  Receive Date: 20120424
  Receipt Date: 20120420
  Transmission Date: 20120825
  Serious: Yes (Other)
  Sender: FDA-Public Use
  Company Number: PHHY2012GB033947

PATIENT
  Age: 60 Year
  Sex: Male
  Weight: 94.4 kg

DRUGS (9)
  1. BUMETANIDE [Suspect]
  2. SPIRONOLACTONE [Suspect]
  3. BISOPROLOL FUMARATE [Concomitant]
  4. METFORMIN HCL [Concomitant]
  5. OMEPRAZOLE [Concomitant]
  6. ATORVASTATIN [Concomitant]
  7. VICTOZA [Interacting]
     Dosage: UNK
     Route: 058
     Dates: start: 20111017, end: 20120118
  8. WARFARIN SODIUM [Interacting]
  9. CANDESARTAN CILEXETIL [Concomitant]

REACTIONS (4)
  - PALPITATIONS [None]
  - DYSPNOEA [None]
  - DRUG INTERACTION [None]
  - INTERNATIONAL NORMALISED RATIO DECREASED [None]
